FAERS Safety Report 7239355-1 (Version None)
Quarter: 2011Q1

REPORT INFORMATION
  Report Type: 
  Country: None (occurrence: None)
  Receive Date: 20110121
  Receipt Date: 20110113
  Transmission Date: 20110831
  Serious: Yes (Other)
  Sender: FDA-Public Use
  Company Number: US-B.I. PHARMACEUTICALS,INC./RIDGEFIELD-2011-DE-00459GD

PATIENT
  Sex: Male

DRUGS (2)
  1. LEVODOPA [Suspect]
     Indication: PARKINSON'S DISEASE
     Dosage: 1500 MG
  2. PRAMIPEXOLE [Suspect]
     Indication: PARKINSON'S DISEASE
     Dosage: 4.5 MG

REACTIONS (4)
  - HYPERSEXUALITY [None]
  - MARITAL PROBLEM [None]
  - JEALOUS DELUSION [None]
  - PATHOLOGICAL GAMBLING [None]
